FAERS Safety Report 9974214 (Version 1)
Quarter: 2014Q1

REPORT INFORMATION
  Report Type: Report from Study
  Country: US (occurrence: US)
  Receive Date: 20140306
  Receipt Date: 20140306
  Transmission Date: 20141002
  Serious: No
  Sender: FDA-Public Use
  Company Number: US-ABBVIE-13P-163-1158757-00

PATIENT
  Sex: Female

DRUGS (4)
  1. HUMIRA [Suspect]
     Indication: CHRONIC RECURRENT MULTIFOCAL OSTEOMYELITIS
  2. HUMIRA [Suspect]
     Dosage: DOSE INCREASED WEEKLY
  3. LIDOCAINE [Suspect]
     Indication: CHRONIC RECURRENT MULTIFOCAL OSTEOMYELITIS
  4. MELOXICAM [Concomitant]
     Indication: CHRONIC RECURRENT MULTIFOCAL OSTEOMYELITIS
     Dosage: 3.75MG DAILY

REACTIONS (6)
  - Off label use [Not Recovered/Not Resolved]
  - Chronic recurrent multifocal osteomyelitis [Not Recovered/Not Resolved]
  - Skin plaque [Not Recovered/Not Resolved]
  - Upper respiratory tract infection [Not Recovered/Not Resolved]
  - Alopecia [Not Recovered/Not Resolved]
  - Arthralgia [Not Recovered/Not Resolved]
